FAERS Safety Report 8266699-7 (Version None)
Quarter: 2012Q2

REPORT INFORMATION
  Report Type: 
  Country: None (occurrence: None)
  Receive Date: 20120409
  Receipt Date: 20120328
  Transmission Date: 20120825
  Serious: Yes (Disabling)
  Sender: FDA-Public Use
  Company Number: JP-BRISTOL-MYERS SQUIBB COMPANY-16317521

PATIENT
  Age: 59 Year
  Sex: Male
  Weight: 54 kg

DRUGS (10)
  1. PREDNISOLONE [Concomitant]
     Dosage: TABS
     Route: 048
     Dates: start: 20111212, end: 20111222
  2. CYCLOPHOSPHAMIDE [Concomitant]
     Indication: ACUTE LYMPHOCYTIC LEUKAEMIA
     Route: 042
     Dates: start: 20111212, end: 20111212
  3. CYCLOPHOSPHAMIDE [Concomitant]
     Dosage: CYCLOPHOSPHAMIDE HYDRATE IV DROP
     Route: 042
     Dates: start: 20111212, end: 20111212
  4. VINCRISTINE SULFATE [Concomitant]
     Dosage: INJECTION
     Route: 042
     Dates: start: 20111212, end: 20111219
  5. METHOTREXATE [Concomitant]
     Indication: ACUTE LYMPHOCYTIC LEUKAEMIA
     Route: 039
     Dates: start: 20120110, end: 20120110
  6. PREDNISONE [Concomitant]
     Indication: ACUTE LYMPHOCYTIC LEUKAEMIA
     Route: 048
     Dates: start: 20111212, end: 20120101
  7. CYTARABINE [Concomitant]
     Indication: ACUTE LYMPHOCYTIC LEUKAEMIA
     Route: 037
     Dates: start: 20110110, end: 20120110
  8. SPRYCEL [Suspect]
     Indication: ACUTE LYMPHOCYTIC LEUKAEMIA
     Dosage: 140 MG
     Route: 048
     Dates: start: 20111219, end: 20111221
  9. DAUNORUBICIN HCL [Concomitant]
     Indication: ACUTE LYMPHOCYTIC LEUKAEMIA
     Dosage: IV DROP INJECTION
     Route: 042
     Dates: start: 20111212, end: 20111213
  10. ONCOVIN [Concomitant]
     Indication: ACUTE LYMPHOCYTIC LEUKAEMIA
     Route: 042
     Dates: start: 20111212, end: 20120102

REACTIONS (1)
  - MYALGIA [None]
